FAERS Safety Report 6346525-3 (Version None)
Quarter: 2009Q3

REPORT INFORMATION
  Report Type: 
  Country: None (occurrence: None)
  Receive Date: 20090909
  Receipt Date: 20090828
  Transmission Date: 20100115
  Serious: Yes (Other)
  Sender: FDA-Public Use
  Company Number: US-ELI_LILLY_AND_COMPANY-US200908006568

PATIENT
  Sex: Female

DRUGS (5)
  1. FORTEO [Suspect]
     Dates: start: 20080201, end: 20090801
  2. SOLODYN [Concomitant]
  3. ELTROXIN [Concomitant]
  4. ADVIL LIQUI-GELS [Concomitant]
  5. CALCIUM W/VITAMIN D NOS [Concomitant]

REACTIONS (1)
  - TEMPOROMANDIBULAR JOINT SYNDROME [None]
